FAERS Safety Report 7152613-4 (Version None)
Quarter: 2010Q4

REPORT INFORMATION
  Report Type: 
  Country: None (occurrence: None)
  Receive Date: 20101209
  Receipt Date: 20101209
  Transmission Date: 20110411
  Serious: Yes (Hospitalization)
  Sender: FDA-Public Use
  Company Number: None

PATIENT
  Sex: Male
  Weight: 26.5 kg

DRUGS (6)
  1. SODIUM THIOSULFATE [Suspect]
     Dosage: 14.5 G
  2. CISPLATIN [Concomitant]
  3. CYCLOPHOSPHAMIDE [Concomitant]
  4. ETOPOSIDE [Concomitant]
  5. METHOTREXATE [Concomitant]
  6. VINCRISTINE [Concomitant]

REACTIONS (4)
  - METABOLIC ACIDOSIS [None]
  - MUCOSAL INFLAMMATION [None]
  - RESPIRATORY DISTRESS [None]
  - STRIDOR [None]
